FAERS Safety Report 7384438 (Version 3)
Quarter: 2014Q2

REPORT INFORMATION
  Report Type: Spontaneous
  Country: US (occurrence: US)
  Receive Date: 20100512
  Receipt Date: 20140602
  Transmission Date: 20141212
  Serious: Yes (Other)
  Sender: FDA-Public Use
  Company Number: US-BIOGENIDEC-2010BI014805

PATIENT
  Age: 49 Year
  Sex: Female
  Weight: 72 kg

DRUGS (3)
  1. AVONEX [Suspect]
     Indication: MULTIPLE SCLEROSIS
     Route: 030
     Dates: start: 20031024, end: 20080626
  2. NEURONTIN [Concomitant]
     Indication: MULTIPLE SCLEROSIS
  3. LEXAPRO [Concomitant]
     Indication: DEPRESSION

REACTIONS (5)
  - Convulsion [Recovered/Resolved]
  - Memory impairment [Not Recovered/Not Resolved]
  - Disturbance in attention [Not Recovered/Not Resolved]
  - Cataract [Not Recovered/Not Resolved]
  - Retinal aneurysm [Not Recovered/Not Resolved]
